FAERS Safety Report 6433455-1 (Version None)
Quarter: 2009Q4

REPORT INFORMATION
  Report Type: 
  Country: None (occurrence: None)
  Receive Date: 20091106
  Receipt Date: 20091106
  Transmission Date: 20100525
  Serious: Yes (Life-Threatening)
  Sender: FDA-Public Use
  Company Number: None

PATIENT
  Age: 67 Year
  Sex: Female
  Weight: 52.1637 kg

DRUGS (1)
  1. KIRKLAND SIGNATURE 150 MG PACKAGED BY PERRIGO FOR COSTCO [Suspect]
     Indication: DYSPEPSIA
     Dosage: 1 EV 12 HRS. PO
     Route: 048
     Dates: start: 20091025, end: 20091025

REACTIONS (4)
  - PARAESTHESIA ORAL [None]
  - PRODUCT SUBSTITUTION ISSUE [None]
  - THROAT IRRITATION [None]
  - THROAT TIGHTNESS [None]
